FAERS Safety Report 6940095-4 (Version None)
Quarter: 2010Q3

REPORT INFORMATION
  Report Type: 
  Country: None (occurrence: None)
  Receive Date: 20100825
  Receipt Date: 20100817
  Transmission Date: 20110219
  Serious: Yes (Hospitalization)
  Sender: FDA-Public Use
  Company Number: BR-US-EMD SERONO, INC.-7014803

PATIENT
  Sex: Female

DRUGS (4)
  1. REBIF [Suspect]
     Indication: RELAPSING-REMITTING MULTIPLE SCLEROSIS
     Route: 058
     Dates: start: 20070106
  2. CARBAMAZEPINE [Concomitant]
  3. FLUOXETINE [Concomitant]
  4. SONRIDOR [Concomitant]

REACTIONS (2)
  - POLYCYSTIC OVARIES [None]
  - URINARY TRACT INFECTION [None]
